FAERS Safety Report 6405331-1 (Version None)
Quarter: 2009Q4

REPORT INFORMATION
  Report Type: 
  Country: None (occurrence: None)
  Receive Date: 20091016
  Receipt Date: 20091016
  Transmission Date: 20100525
  Serious: No
  Sender: FDA-Public Use
  Company Number: None

PATIENT

DRUGS (2)
  1. CLONIDINE [Suspect]
     Indication: ANGINA PECTORIS
     Dosage: 0.3 1 WK TOPICAL
     Route: 061
     Dates: start: 20090920
  2. CLONIDINE [Suspect]
     Indication: CORONARY ARTERY DISEASE
     Dosage: 0.3 1 WK TOPICAL
     Route: 061
     Dates: start: 20090920

REACTIONS (5)
  - DECREASED APPETITE [None]
  - HEADACHE [None]
  - INSOMNIA [None]
  - NAUSEA [None]
  - VOMITING [None]
